FAERS Safety Report 20721518 (Version 2)
Quarter: 2022Q2

REPORT INFORMATION
  Report Type: Spontaneous
  Country: IT (occurrence: IT)
  Receive Date: 20220418
  Receipt Date: 20220429
  Transmission Date: 20220720
  Serious: No
  Sender: FDA-Public Use
  Company Number: IT-MLMSERVICE-20220316-3435728-1

PATIENT
  Age: 44 Year
  Sex: Female

DRUGS (6)
  1. MIRTAZAPINE [Suspect]
     Active Substance: MIRTAZAPINE
     Indication: Post-traumatic stress disorder
     Dosage: 15 MG, QD (AT BEDTIME)
     Route: 065
     Dates: start: 2020, end: 2020
  2. PAROXETINE [Suspect]
     Active Substance: PAROXETINE
     Indication: Post-traumatic stress disorder
     Dosage: 20 MG
     Route: 065
     Dates: start: 202004
  3. PAROXETINE [Suspect]
     Active Substance: PAROXETINE
     Dosage: 40 MG, QD  IN COMBINATION WITH TRAZADONE (AT BEDTIME)
     Route: 065
     Dates: start: 2020
  4. PAROXETINE [Suspect]
     Active Substance: PAROXETINE
     Dosage: 20 MG, QD
     Route: 065
     Dates: start: 202004
  5. TRAZODONE [Concomitant]
     Active Substance: TRAZODONE HYDROCHLORIDE
     Indication: Post-traumatic stress disorder
     Dosage: 75 MILLIGRAM, QD (AT BEDTIME) COMBINATION WITH PAROXETINE
     Route: 065
     Dates: start: 2020
  6. TRAZODONE [Concomitant]
     Active Substance: TRAZODONE HYDROCHLORIDE
     Dosage: 150 MILLIGRAM
     Route: 065
     Dates: start: 2020

REACTIONS (3)
  - Off label use [Unknown]
  - Drug ineffective for unapproved indication [Unknown]
  - Somnolence [Unknown]

NARRATIVE: CASE EVENT DATE: 20200101
